FAERS Safety Report 9563569 (Version 1)
Quarter: 2013Q3

REPORT INFORMATION
  Report Type: Spontaneous
  Country: US (occurrence: None)
  Receive Date: 20130926
  Receipt Date: 20130926
  Transmission Date: 20140515
  Serious: Yes (Hospitalization)
  Sender: FDA-Public Use
  Company Number: None

PATIENT
  Age: 65 Year
  Sex: Male
  Weight: 71.2 kg

DRUGS (7)
  1. IRINOTECAN [Suspect]
  2. OXALIPLATIN [Suspect]
  3. 5-FLUOROURACIL (5-FU) [Suspect]
  4. LEUCOVORIN CALCIUM [Suspect]
  5. ZOLPIDEM [Concomitant]
  6. ASPIRIN [Concomitant]
  7. ZOCOR [Concomitant]

REACTIONS (2)
  - Nausea [None]
  - Vomiting [None]
